FAERS Safety Report 5248550-2 (Version None)
Quarter: 2007Q1

REPORT INFORMATION
  Report Type: 
  Country: None (occurrence: None)
  Receive Date: 20070222
  Receipt Date: 20070212
  Transmission Date: 20070707
  Serious: Yes (Hospitalization)
  Sender: FDA-Public Use
  Company Number: 2007S1000040

PATIENT
  Age: 76 Year
  Sex: Female
  Weight: 62 kg

DRUGS (3)
  1. ACITRETIN [Suspect]
     Indication: PUSTULAR PSORIASIS
     Dosage: QD; PO; 50 MG;QD;PO
     Route: 048
  2. ACITRETIN [Suspect]
     Indication: PUSTULAR PSORIASIS
     Dosage: QD; PO; 50 MG;QD;PO
     Route: 048
  3. CLARITHROMYCIN [Concomitant]

REACTIONS (19)
  - ACUTE GENERALISED EXANTHEMATOUS PUSTULOSIS [None]
  - BLOOD ALBUMIN DECREASED [None]
  - BLOOD ALKALINE PHOSPHATASE INCREASED [None]
  - BLOOD CALCIUM DECREASED [None]
  - BLOOD SODIUM INCREASED [None]
  - CAPILLARY LEAK SYNDROME [None]
  - ERYSIPELAS [None]
  - GAMMA-GLUTAMYLTRANSFERASE INCREASED [None]
  - GAMMOPATHY [None]
  - HAEMATOCRIT DECREASED [None]
  - HAEMOGLOBIN DECREASED [None]
  - HYPOTENSION [None]
  - JOINT DISLOCATION [None]
  - LUNG INFILTRATION [None]
  - MASTITIS [None]
  - OEDEMA PERIPHERAL [None]
  - OLIGURIA [None]
  - PLEURAL EFFUSION [None]
  - RENAL IMPAIRMENT [None]
